FAERS Safety Report 7167340-7 (Version None)
Quarter: 2010Q4

REPORT INFORMATION
  Report Type: 
  Country: None (occurrence: None)
  Receive Date: 20101216
  Receipt Date: 20101210
  Transmission Date: 20110411
  Serious: Yes (Death, Life-Threatening, Hospitalization, Other)
  Sender: FDA-Public Use
  Company Number: PHHY2010JP77455

PATIENT
  Sex: Male
  Weight: 62 kg

DRUGS (8)
  1. DIOVAN [Suspect]
     Indication: HYPERTENSION
     Dosage: 40 MG, QD
     Route: 048
     Dates: start: 20100419
  2. FASTIC [Suspect]
     Indication: DIABETES MELLITUS
     Dosage: 90 MG DAILY
     Route: 048
     Dates: start: 20100419
  3. TAKEPRON [Suspect]
     Indication: GASTRIC ULCER
     Dosage: 15 MG DAILY
     Route: 048
     Dates: start: 20070724
  4. ALLOPURINOL [Suspect]
     Indication: HYPERURICAEMIA
     Dosage: 100 MG DAILY
     Route: 048
     Dates: start: 20070619
  5. DIART [Concomitant]
     Indication: RENAL FAILURE
     Dosage: 30 MG, UNK
     Route: 048
     Dates: start: 20080718
  6. ULCERLMIN [Concomitant]
     Indication: GASTRIC ULCER
     Dosage: 3 G, UNK
     Route: 048
     Dates: start: 20070724, end: 20101111
  7. MINOCYCLINE HYDROCHLORIDE [Concomitant]
     Indication: HYPERURICAEMIA
     Dosage: 100 MG
  8. CEFTRIAXONE SODIUM [Concomitant]
     Dosage: UNK
     Dates: end: 20101113

REACTIONS (5)
  - CARDIAC ARREST [None]
  - INTERSTITIAL LUNG DISEASE [None]
  - PULMONARY OEDEMA [None]
  - RENAL IMPAIRMENT [None]
  - URINE OUTPUT DECREASED [None]
